FAERS Safety Report 7119044-4 (Version None)
Quarter: 2010Q4

REPORT INFORMATION
  Report Type: 
  Country: None (occurrence: None)
  Receive Date: 20101123
  Receipt Date: 20101116
  Transmission Date: 20110411
  Serious: Yes (Hospitalization)
  Sender: FDA-Public Use
  Company Number: A0894413A

PATIENT
  Age: 43 Year
  Sex: Male

DRUGS (5)
  1. WELLBUTRIN [Suspect]
     Indication: DEPRESSION
     Route: 048
     Dates: end: 20100101
  2. ZOLOFT [Suspect]
     Indication: DEPRESSION
     Dosage: 100MG UNKNOWN
     Route: 048
     Dates: start: 19920101, end: 20100301
  3. LEXAPRO [Suspect]
     Indication: DEPRESSION
     Dosage: 30MGD PER DAY
     Route: 048
     Dates: start: 20100101
  4. CYMBALTA [Suspect]
     Indication: DEPRESSION
     Dosage: 60MG PER DAY
     Route: 048
     Dates: start: 20100101, end: 20100101
  5. METHADONE HCL [Concomitant]
     Indication: KNEE OPERATION

REACTIONS (7)
  - ARTHROPATHY [None]
  - DEPRESSION [None]
  - DRUG INEFFECTIVE [None]
  - FATIGUE [None]
  - KNEE ARTHROPLASTY [None]
  - SOMNOLENCE [None]
  - SUICIDAL BEHAVIOUR [None]
